FAERS Safety Report 22955027 (Version 4)
Quarter: 2023Q4

REPORT INFORMATION
  Report Type: Report from Study
  Country: US (occurrence: US)
  Receive Date: 20230918
  Receipt Date: 20231011
  Transmission Date: 20240110
  Serious: Yes (Death)
  Sender: FDA-Public Use
  Company Number: US-BIOGEN-2023BI01226186

PATIENT
  Age: 41 Year
  Sex: Female

DRUGS (3)
  1. TYSABRI [Suspect]
     Active Substance: NATALIZUMAB
     Indication: Multiple sclerosis
     Route: 050
     Dates: start: 20090416, end: 20130308
  2. TYSABRI [Suspect]
     Active Substance: NATALIZUMAB
     Route: 050
     Dates: start: 20160613, end: 20230805
  3. TYSABRI [Suspect]
     Active Substance: NATALIZUMAB
     Dosage: NFUSED OVER 1 HOUR
     Route: 050
     Dates: start: 20090416, end: 20130826

REACTIONS (1)
  - Death [Fatal]

NARRATIVE: CASE EVENT DATE: 20230815
